FAERS Safety Report 18190559 (Version 1)
Quarter: 2020Q3

REPORT INFORMATION
  Report Type: Spontaneous
  Country: CA (occurrence: CA)
  Receive Date: 20200825
  Receipt Date: 20200825
  Transmission Date: 20201103
  Serious: Yes (Hospitalization, Other)
  Sender: FDA-Public Use
  Company Number: CA-TEVA-2020-CA-1817791

PATIENT
  Age: 61 Year
  Sex: Female

DRUGS (17)
  1. TYLENOL [Concomitant]
     Active Substance: ACETAMINOPHEN
  2. CHOLECALCIFEROL [Concomitant]
     Active Substance: CHOLECALCIFEROL
  3. METFORMIN [Concomitant]
     Active Substance: METFORMIN HYDROCHLORIDE
  4. PANTOPRAZOLE [Concomitant]
     Active Substance: PANTOPRAZOLE
  5. PERINDOPRIL [Concomitant]
     Active Substance: PERINDOPRIL
  6. CALCIUM CARBONATE. [Concomitant]
     Active Substance: CALCIUM CARBONATE
  7. ROSUVASTATIN. [Concomitant]
     Active Substance: ROSUVASTATIN
  8. ETOPOSIDE LIQ IV 20MG/ML [Suspect]
     Active Substance: ETOPOSIDE
  9. EMPAGLIFLOZIN;LINAGLIPTIN [Concomitant]
     Active Substance: EMPAGLIFLOZIN\LINAGLIPTIN
  10. EZETIMIBE. [Concomitant]
     Active Substance: EZETIMIBE
  11. MELATONIN [Concomitant]
     Active Substance: MELATONIN
  12. PREDNISONE. [Concomitant]
     Active Substance: PREDNISONE
  13. TRIMETHOPRIM. [Concomitant]
     Active Substance: TRIMETHOPRIM
  14. HYDROMORPHONE [Concomitant]
     Active Substance: HYDROMORPHONE
  15. CISPLATIN INJECTION BP 10MG/10ML, 50MG/50ML, 100MG/100ML [Suspect]
     Active Substance: CISPLATIN
  16. SENNOSIDES. [Concomitant]
     Active Substance: SENNOSIDES
  17. SULFA [Concomitant]
     Active Substance: UNSPECIFIED INGREDIENT

REACTIONS (4)
  - Vomiting [Recovering/Resolving]
  - Nausea [Recovering/Resolving]
  - Abdominal pain [Recovering/Resolving]
  - Dehydration [Recovering/Resolving]
